FAERS Safety Report 9220508 (Version 2)
Quarter: 2013Q2

REPORT INFORMATION
  Report Type: Spontaneous
  Country: BR (occurrence: BR)
  Receive Date: 20130409
  Receipt Date: 20130614
  Transmission Date: 20140414
  Serious: Yes (Other)
  Sender: FDA-Public Use
  Company Number: BR-BAYER-2013-042342

PATIENT
  Age: 22 Year
  Sex: Female
  Weight: 59.86 kg

DRUGS (1)
  1. YAZ (24) [Suspect]
     Indication: CONTRACEPTION
     Dosage: UNK
     Route: 048
     Dates: start: 201209

REACTIONS (3)
  - Tonsillitis [Recovered/Resolved]
  - Drug administration error [None]
  - Tonsillitis [Recovered/Resolved]
